FAERS Safety Report 8779665 (Version 1)
Quarter: 2012Q4

REPORT INFORMATION
  Report Type: 
  Country: US (occurrence: US)
  Receive Date: 20120912
  Receipt Date: 20120912
  Transmission Date: 20130627
  Serious: No
  Sender: FDA-Public Use
  Company Number: US-BAYER-2012-079008

PATIENT

DRUGS (1)
  1. DESONATE GEL [Suspect]
     Indication: SEBORRHOEIC DERMATITIS
     Dosage: UNK
     Dates: start: 201205

REACTIONS (4)
  - Hirsutism [None]
  - Skin hyperpigmentation [None]
  - Hypotonia [None]
  - Depression [None]
